FAERS Safety Report 4767973-9 (Version None)
Quarter: 2005Q3

REPORT INFORMATION
  Report Type: 
  Country: None (occurrence: None)
  Receive Date: 20050912
  Receipt Date: 20050831
  Transmission Date: 20060218
  Serious: Yes (Hospitalization)
  Sender: FDA-Public Use
  Company Number: US-2005-004065

PATIENT
  Age: 54 Year
  Sex: Female

DRUGS (9)
  1. BETASERON [Suspect]
     Indication: RELAPSING-REMITTING MULTIPLE SCLEROSIS
     Dosage: 8 MIU, EVERY 2D, SUBCUTANEOUS
     Route: 058
     Dates: start: 20040506, end: 20050301
  2. FOLIC ACID [Concomitant]
  3. VITAMIN B-12 [Concomitant]
  4. REMERON [Concomitant]
  5. BEXTRA [Concomitant]
  6. KEPPRA [Concomitant]
  7. NEXIUM [Concomitant]
  8. POTASSIUM CHLORIDE [Concomitant]
  9. VITAMIN E [Concomitant]

REACTIONS (34)
  - ABNORMAL BEHAVIOUR [None]
  - BLOOD ALBUMIN DECREASED [None]
  - BLOOD CORTISOL DECREASED [None]
  - BLOOD FOLATE DECREASED [None]
  - BLOOD GLUCOSE INCREASED [None]
  - BLOOD POTASSIUM DECREASED [None]
  - BLOOD THYROID STIMULATING HORMONE DECREASED [None]
  - CATATONIA [None]
  - CONDITION AGGRAVATED [None]
  - CYCLOTHYMIC DISORDER [None]
  - DELUSIONAL DISORDER, UNSPECIFIED TYPE [None]
  - DEPRESSION [None]
  - DISORIENTATION [None]
  - DISSOCIATIVE DISORDER [None]
  - HAEMATOCRIT DECREASED [None]
  - HAEMOGLOBIN DECREASED [None]
  - INDIFFERENCE [None]
  - JUDGEMENT IMPAIRED [None]
  - LABORATORY TEST ABNORMAL [None]
  - MARITAL PROBLEM [None]
  - MEMORY IMPAIRMENT [None]
  - MENTAL IMPAIRMENT [None]
  - MORBID THOUGHTS [None]
  - MULTIPLE SCLEROSIS [None]
  - MUSCLE RIGIDITY [None]
  - OEDEMA PERIPHERAL [None]
  - PERSONALITY DISORDER [None]
  - PROTEIN TOTAL DECREASED [None]
  - PSYCHOMOTOR RETARDATION [None]
  - RED BLOOD CELL COUNT DECREASED [None]
  - TRANCE [None]
  - VITAMIN B12 DECREASED [None]
  - WEIGHT DECREASED [None]
  - WHITE BLOOD CELL COUNT DECREASED [None]
